FAERS Safety Report 11344018 (Version 4)
Quarter: 2016Q1

REPORT INFORMATION
  Report Type: Spontaneous
  Country: US (occurrence: US)
  Receive Date: 20150806
  Receipt Date: 20160104
  Transmission Date: 20160525
  Serious: Yes (Hospitalization)
  Sender: FDA-Public Use
  Company Number: US-JNJFOC-20150802851

PATIENT
  Age: 68 Year
  Sex: Male

DRUGS (18)
  1. INSULIN GLARGINE [Concomitant]
     Active Substance: INSULIN GLARGINE
     Indication: DIABETES MELLITUS
     Dosage: 15 UNITS EVERY EVENING
     Route: 058
  2. FLONASE [Concomitant]
     Active Substance: FLUTICASONE PROPIONATE
     Dosage: 1 SPRAY EACH NOSTRIL DAILY
  3. DOXYCYCLINE. [Concomitant]
     Active Substance: DOXYCYCLINE
     Dates: end: 20150615
  4. IMBRUVICA [Suspect]
     Active Substance: IBRUTINIB
     Indication: CHRONIC LYMPHOCYTIC LEUKAEMIA
     Route: 048
     Dates: start: 201401, end: 20150715
  5. LEVOFLOXACIN. [Concomitant]
     Active Substance: LEVOFLOXACIN
  6. MULTIVITAMIN [Concomitant]
     Active Substance: VITAMINS
     Route: 048
  7. ALBUTEROL. [Concomitant]
     Active Substance: ALBUTEROL
     Dates: end: 20150715
  8. DIGOXIN. [Concomitant]
     Active Substance: DIGOXIN
  9. TYLENOL [Concomitant]
     Active Substance: ACETAMINOPHEN
     Route: 048
  10. LOSARTAN. [Concomitant]
     Active Substance: LOSARTAN
     Dates: end: 20150715
  11. MOXIFLOXACIN. [Concomitant]
     Active Substance: MOXIFLOXACIN
     Dates: end: 20150715
  12. IMBRUVICA [Suspect]
     Active Substance: IBRUTINIB
     Indication: CHRONIC LYMPHOCYTIC LEUKAEMIA
     Route: 048
     Dates: start: 20150825
  13. SOTALOL. [Concomitant]
     Active Substance: SOTALOL
  14. LASIX [Concomitant]
     Active Substance: FUROSEMIDE
     Dates: end: 20150715
  15. INSULIN GLARGINE [Concomitant]
     Active Substance: INSULIN GLARGINE
     Indication: DIABETES MELLITUS
     Dosage: 30 UNITS EVERY MORNING
     Route: 058
  16. HYTRIN [Concomitant]
     Active Substance: TERAZOSIN HYDROCHLORIDE
     Dosage: EVERY PM
     Route: 048
  17. PERCOCET [Concomitant]
     Active Substance: ACETAMINOPHEN\OXYCODONE HYDROCHLORIDE
     Indication: PAIN
     Dosage: 5-325 MG, AS NEEDED
     Route: 048
  18. BACTRIM [Concomitant]
     Active Substance: SULFAMETHOXAZOLE\TRIMETHOPRIM

REACTIONS (17)
  - Rash [Recovering/Resolving]
  - Dyspnoea [Recovering/Resolving]
  - Retroperitoneal lymphadenopathy [None]
  - Pneumonia [Unknown]
  - Acute kidney injury [Not Recovered/Not Resolved]
  - Abdominal pain [None]
  - Dysphagia [Recovering/Resolving]
  - Atrial fibrillation [Recovered/Resolved]
  - Proteus infection [Recovered/Resolved]
  - Pleural effusion [Not Recovered/Not Resolved]
  - Enterococcal infection [Recovering/Resolving]
  - Malaise [Unknown]
  - Pericardial effusion [Recovering/Resolving]
  - Alanine aminotransferase increased [None]
  - Pulmonary hypertension [Unknown]
  - Hypernatraemia [Recovered/Resolved]
  - Diarrhoea [None]

NARRATIVE: CASE EVENT DATE: 2015
